FAERS Safety Report 6327343-9 (Version None)
Quarter: 2009Q3

REPORT INFORMATION
  Report Type: 
  Country: None (occurrence: None)
  Receive Date: 20090818
  Receipt Date: 20090507
  Transmission Date: 20100115
  Serious: No
  Sender: FDA-Public Use
  Company Number: WAES 0905USA00982

PATIENT
  Age: 77 Year
  Sex: Female
  Weight: 88.905 kg

DRUGS (1)
  1. JANUVIA [Suspect]
     Indication: DIABETES MELLITUS
     Dosage: 100 MG/DAILY/PO
     Route: 048
     Dates: start: 20090423, end: 20090504

REACTIONS (4)
  - EXFOLIATIVE RASH [None]
  - MALAISE [None]
  - NAUSEA [None]
  - RASH PRURITIC [None]
